FAERS Safety Report 16383237 (Version 1)
Quarter: 2019Q2

REPORT INFORMATION
  Report Type: Spontaneous
  Country: US (occurrence: US)
  Receive Date: 20190426
  Receipt Date: 20190426
  Transmission Date: 20190711
  Serious: Yes (Hospitalization)
  Sender: FDA-Public Use
  Company Number: None

PATIENT
  Age: 42 Year
  Sex: Male
  Weight: 90.72 kg

DRUGS (1)
  1. COPAXONE GENERIC 40MG [Suspect]
     Active Substance: GLATIRAMER ACETATE
     Indication: MULTIPLE SCLEROSIS
     Dosage: ?          OTHER FREQUENCY:3 X WEEKLY ;?
     Route: 058
     Dates: start: 201811

REACTIONS (6)
  - Hypoaesthesia [None]
  - Condition aggravated [None]
  - Injection site reaction [None]
  - Nuclear magnetic resonance imaging abnormal [None]
  - Asthenia [None]
  - Chills [None]

NARRATIVE: CASE EVENT DATE: 20190320
